FAERS Safety Report 8991271 (Version 1)
Quarter: 2012Q4

REPORT INFORMATION
  Report Type: Report from Study
  Country: CA (occurrence: CA)
  Receive Date: 20121231
  Receipt Date: 20121231
  Transmission Date: 20130627
  Serious: Yes (Other)
  Sender: FDA-Public Use
  Company Number: CA-ROCHE-1166689

PATIENT
  Sex: Male

DRUGS (1)
  1. OMALIZUMAB [Suspect]
     Indication: PRODUCT USED FOR UNKNOWN INDICATION
     Route: 058
     Dates: start: 20061113

REACTIONS (7)
  - Blood pressure increased [Unknown]
  - Vision blurred [Unknown]
  - Sinus congestion [Unknown]
  - Sinus headache [Unknown]
  - Hyperhidrosis [Unknown]
  - Viral infection [Unknown]
  - Oropharyngeal pain [Unknown]
